FAERS Safety Report 24561187 (Version 1)
Quarter: 2024Q4

REPORT INFORMATION
  Report Type: Spontaneous
  Country: US (occurrence: None)
  Receive Date: 20241029
  Receipt Date: 20241029
  Transmission Date: 20250114
  Serious: No
  Sender: Public
  Company Number: None

PATIENT
  Age: 66 Year
  Sex: Male
  Weight: 74.4 kg

DRUGS (2)
  1. CAPECITABINE [Suspect]
     Active Substance: CAPECITABINE
     Dates: end: 20241020
  2. ELOXATIN [Suspect]
     Active Substance: OXALIPLATIN
     Dates: end: 20241007

REACTIONS (3)
  - Migraine [None]
  - Angle closure glaucoma [None]
  - Headache [None]

NARRATIVE: CASE EVENT DATE: 20241007
